FAERS Safety Report 4593858-7 (Version None)
Quarter: 2005Q1

REPORT INFORMATION
  Report Type: 
  Country: None (occurrence: None)
  Receive Date: 20050301
  Receipt Date: 20050218
  Transmission Date: 20050727
  Serious: Yes (Hospitalization)
  Sender: FDA-Public Use
  Company Number: 200510632FR

PATIENT
  Age: 68 Year
  Sex: Male

DRUGS (7)
  1. LASILIX 40 MG [Suspect]
     Route: 048
     Dates: end: 20050126
  2. HYPERIUM [Suspect]
     Route: 048
     Dates: start: 20030715, end: 20050124
  3. NITRIDERM TTS 10 MG/24 H [Suspect]
     Route: 023
     Dates: start: 20030715
  4. IMOVANE [Concomitant]
     Route: 048
     Dates: start: 19950701
  5. LEXOMIL ROCHE [Concomitant]
     Route: 048
     Dates: start: 19950701
  6. DIGOXIN [Concomitant]
     Dates: start: 19890101
  7. PREVISCAN 20 MG [Concomitant]
     Route: 048
     Dates: start: 19980101

REACTIONS (8)
  - ACARODERMATITIS [None]
  - BLOOD IMMUNOGLOBULIN E INCREASED [None]
  - DRUG INEFFECTIVE [None]
  - ECZEMA [None]
  - EOSINOPHILIA [None]
  - PRURITUS [None]
  - THROMBOCYTOPENIA [None]
  - TOXIC SKIN ERUPTION [None]
